FAERS Safety Report 8525330-3 (Version None)
Quarter: 2012Q3

REPORT INFORMATION
  Report Type: 
  Country: None (occurrence: None)
  Receive Date: 20120720
  Receipt Date: 20120718
  Transmission Date: 20120928
  Serious: Yes (Death, Hospitalization, Other)
  Sender: FDA-Public Use
  Company Number: PHHY2012BR062256

PATIENT
  Age: 87 Year
  Sex: Female

DRUGS (1)
  1. AMLODOPINE BESYLATE AND VALSARTAN [Suspect]
     Indication: HYPERTENSION
     Dosage: 1 DF (320/10 MG), DAILY

REACTIONS (2)
  - CEREBROVASCULAR ACCIDENT [None]
  - CEREBRAL ISCHAEMIA [None]
